FAERS Safety Report 5301763-3 (Version None)
Quarter: 2007Q2

REPORT INFORMATION
  Report Type: 
  Country: None (occurrence: None)
  Receive Date: 20070419
  Receipt Date: 20070410
  Transmission Date: 20071010
  Serious: Yes (Hospitalization)
  Sender: FDA-Public Use
  Company Number: FI-JNJFOC-20070402175

PATIENT
  Sex: Female
  Weight: 14.8 kg

DRUGS (3)
  1. TOPIMAX [Suspect]
     Indication: EPILEPSY
     Dosage: 25 MG 2.5 TABLETS DAILY
  2. KLACID [Interacting]
     Indication: VIRAL INFECTION
  3. VALPROATE SODIUM [Concomitant]
     Indication: EPILEPSY

REACTIONS (4)
  - APATHY [None]
  - CRYING [None]
  - DRUG INTERACTION [None]
  - EPILEPSY [None]
